FAERS Safety Report 8440762-X (Version None)
Quarter: 2012Q2

REPORT INFORMATION
  Report Type: 
  Country: None (occurrence: None)
  Receive Date: 20120615
  Receipt Date: 20110422
  Transmission Date: 20120825
  Serious: No
  Sender: FDA-Public Use
  Company Number: US-NOVEN-11US002330

PATIENT
  Sex: Male

DRUGS (2)
  1. DAYTRANA [Suspect]
     Indication: PRODUCT USED FOR UNKNOWN INDICATION
     Dosage: 15 MG, UNK
     Route: 062
     Dates: start: 20110418
  2. DAYTRANA [Suspect]
     Dosage: 10 MG, UNK
     Route: 062
     Dates: start: 20110301, end: 20110401

REACTIONS (3)
  - APPLICATION SITE ERYTHEMA [None]
  - RASH [None]
  - APPLICATION SITE EXFOLIATION [None]
